FAERS Safety Report 7742021-7 (Version None)
Quarter: 2011Q3

REPORT INFORMATION
  Report Type: 
  Country: None (occurrence: None)
  Receive Date: 20110907
  Receipt Date: 20110907
  Transmission Date: 20111222
  Serious: No
  Sender: FDA-Public Use
  Company Number: None

PATIENT
  Age: 18 Year
  Sex: Female

DRUGS (1)
  1. MICRONOR [Suspect]
     Indication: CONTRACEPTION
     Dosage: .35 MG DAILY ORAL
     Route: 048
     Dates: start: 20110819, end: 20110830

REACTIONS (3)
  - ACNE [None]
  - MOOD ALTERED [None]
  - EMOTIONAL DISORDER [None]
